FAERS Safety Report 8021760 (Version 2)
Quarter: 2013Q3

REPORT INFORMATION
  Report Type: Spontaneous
  Country: US (occurrence: US)
  Receive Date: 20110705
  Receipt Date: 20130722
  Transmission Date: 20140515
  Serious: Yes (Other)
  Sender: FDA-Public Use
  Company Number: US-JNJFOC-20110409676

PATIENT
  Age: 57 Year
  Sex: Male
  Weight: 113.4 kg

DRUGS (9)
  1. REMICADE [Suspect]
     Indication: COLITIS ULCERATIVE
     Route: 042
     Dates: start: 20110301, end: 20110301
  2. REMICADE [Suspect]
     Indication: COLITIS ULCERATIVE
     Route: 042
     Dates: start: 201012
  3. REMICADE [Suspect]
     Indication: COLITIS ULCERATIVE
     Route: 042
     Dates: start: 201011
  4. REMICADE [Suspect]
     Indication: COLITIS ULCERATIVE
     Route: 042
     Dates: start: 201101
  5. ASPIRIN [Concomitant]
  6. IMURAN [Concomitant]
  7. LIALDA [Concomitant]
  8. ZESTORETIC [Concomitant]
     Dosage: 40/25 MG DAILY
  9. ASCORBIC ACID [Concomitant]

REACTIONS (11)
  - Blindness [Recovered/Resolved]
  - Cardiac murmur [Unknown]
  - Cardiac enzymes increased [Unknown]
  - Cardiac failure congestive [Unknown]
  - Anaphylactic reaction [Recovered/Resolved]
  - Infusion related reaction [Recovered/Resolved]
  - Chest pain [Unknown]
  - Abdominal pain upper [Unknown]
  - Oxygen saturation decreased [Recovered/Resolved]
  - Urticaria [Unknown]
  - Pruritus [Unknown]
